FAERS Safety Report 7282624-X (Version None)
Quarter: 2011Q1

REPORT INFORMATION
  Report Type: 
  Country: None (occurrence: None)
  Receive Date: 20110209
  Receipt Date: 20110201
  Transmission Date: 20110831
  Serious: Yes (Other)
  Sender: FDA-Public Use
  Company Number: US-NOVOPROD-322096

PATIENT
  Sex: Male
  Weight: 107.48 kg

DRUGS (5)
  1. TRILEPTAL [Concomitant]
     Indication: CONVULSION
  2. VICTOZA [Suspect]
     Indication: PRODUCT USED FOR UNKNOWN INDICATION
     Dosage: UNK
     Route: 058
     Dates: start: 20100916, end: 20100901
  3. LAMICTAL [Concomitant]
     Indication: CONVULSION
  4. VICTOZA [Suspect]
     Dosage: UNK
     Route: 058
     Dates: start: 20101101, end: 20101101
  5. KEPPRA [Concomitant]
     Indication: CONVULSION

REACTIONS (1)
  - CONVULSION [None]
